FAERS Safety Report 11157921 (Version 1)
Quarter: 2015Q2

REPORT INFORMATION
  Report Type: Spontaneous
  Country: US (occurrence: US)
  Receive Date: 20150603
  Receipt Date: 20150603
  Transmission Date: 20150821
  Serious: Yes (Other)
  Sender: FDA-Public Use
  Company Number: US-SUN PHARMACEUTICAL INDUSTRIES LTD-2015US-98345

PATIENT
  Sex: Male

DRUGS (1)
  1. LORATADINE AND PSEUDOEPHEDRINE [Suspect]
     Active Substance: LORATADINE\PSEUDOEPHEDRINE SULFATE
     Indication: NASAL DECONGESTION THERAPY
     Dosage: UNK
     Route: 065

REACTIONS (9)
  - Confusional state [Not Recovered/Not Resolved]
  - Balance disorder [Not Recovered/Not Resolved]
  - Amnesia [Unknown]
  - Decreased appetite [Unknown]
  - Erectile dysfunction [Unknown]
  - Renal pain [Not Recovered/Not Resolved]
  - Dyspnoea [Unknown]
  - Chills [Unknown]
  - Vertigo [Unknown]
